FAERS Safety Report 9032420 (Version 1)
Quarter: 2013Q1

REPORT INFORMATION
  Report Type: Spontaneous
  Country: CA (occurrence: None)
  Receive Date: 20130108
  Receipt Date: 20130108
  Transmission Date: 20140127
  Serious: Yes (Other)
  Sender: FDA-Public Use
  Company Number: CA-010291

PATIENT
  Age: 81 Year
  Sex: Male
  Weight: 91 kg

DRUGS (1)
  1. DEGARELIX [Suspect]
     Indication: PROSTATE CANCER
     Dosage: 80 MG 1X/MONTH SUBCUTANEOUS
     Route: 058
     Dates: start: 20121004

REACTIONS (6)
  - Nausea [None]
  - Vomiting [None]
  - Decreased appetite [None]
  - Diarrhoea [None]
  - Abdominal pain [None]
  - Malaise [None]
